FAERS Safety Report 8770552 (Version 1)
Quarter: 2012Q4

REPORT INFORMATION
  Report Type: 
  Country: IN (occurrence: IN)
  Receive Date: 20120906
  Receipt Date: 20120906
  Transmission Date: 20130627
  Serious: Yes (Death)
  Sender: FDA-Public Use
  Company Number: PHHY2012IN077060

PATIENT
  Sex: Male

DRUGS (1)
  1. GLIVEC [Suspect]
     Dosage: Maternal dose: 400 mg
     Route: 064

REACTIONS (3)
  - Death [Fatal]
  - Foetal exposure timing unspecified [Unknown]
  - Death neonatal [None]
